FAERS Safety Report 8765213 (Version 1)
Quarter: 2012Q4

REPORT INFORMATION
  Report Type: 
  Country: US (occurrence: US)
  Receive Date: 20120902
  Receipt Date: 20120902
  Transmission Date: 20130627
  Serious: No
  Sender: FDA-Public Use
  Company Number: US-PFIZER INC-2012212716

PATIENT
  Age: 36 Year
  Sex: Female
  Weight: 61.68 kg

DRUGS (2)
  1. LYRICA [Suspect]
     Indication: FIBROMYALGIA
     Dosage: 300 mg, 1x/day
     Route: 048
  2. CYMBALTA [Suspect]
     Indication: FIBROMYALGIA
     Dosage: 60 mg, daily
     Route: 048

REACTIONS (3)
  - Pain in jaw [Unknown]
  - Oropharyngeal pain [Unknown]
  - Ear pain [Unknown]
